FAERS Safety Report 15410114 (Version 3)
Quarter: 2018Q4

REPORT INFORMATION
  Report Type: Spontaneous
  Country: KR (occurrence: KR)
  Receive Date: 20180921
  Receipt Date: 20181001
  Transmission Date: 20190204
  Serious: Yes (Death)
  Sender: FDA-Public Use
  Company Number: PHHY2018KR096755

PATIENT
  Age: 64 Year
  Sex: Female

DRUGS (3)
  1. THALIDOMIDE [Concomitant]
     Active Substance: THALIDOMIDE
     Indication: AMYLOIDOSIS
     Route: 065
  2. DEXAMETHASONE. [Suspect]
     Active Substance: DEXAMETHASONE
     Indication: AMYLOIDOSIS
     Route: 065
  3. BORTEZOMIB. [Concomitant]
     Active Substance: BORTEZOMIB
     Indication: AMYLOIDOSIS
     Route: 065

REACTIONS (3)
  - Multiple organ dysfunction syndrome [Fatal]
  - Pneumonia [Fatal]
  - Sepsis [Fatal]
